FAERS Safety Report 21361337 (Version 4)
Quarter: 2022Q4

REPORT INFORMATION
  Report Type: Spontaneous
  Country: US (occurrence: US)
  Receive Date: 20220921
  Receipt Date: 20221104
  Transmission Date: 20230113
  Serious: No
  Sender: FDA-Public Use
  Company Number: US-PFIZER INC-PV202200054454

PATIENT
  Age: 7 Year
  Sex: Male

DRUGS (2)
  1. GENOTROPIN [Suspect]
     Active Substance: SOMATROPIN
     Dosage: 0.7 MG
     Dates: start: 2016
  2. GENOTROPIN [Suspect]
     Active Substance: SOMATROPIN
     Dosage: 0.7 MG, DAILY (NIGHTLY)

REACTIONS (4)
  - Drug dose omission by device [Unknown]
  - Expired device used [Unknown]
  - Device power source issue [Unknown]
  - Device breakage [Unknown]

NARRATIVE: CASE EVENT DATE: 20220801
